FAERS Safety Report 10606305 (Version 2)
Quarter: 2014Q4

REPORT INFORMATION
  Report Type: Spontaneous
  Country: KR (occurrence: KR)
  Receive Date: 20141125
  Receipt Date: 20141205
  Transmission Date: 20150529
  Serious: Yes (Other)
  Sender: FDA-Public Use
  Company Number: KR-JNJFOC-20141111273

PATIENT
  Age: 39 Year
  Sex: Male

DRUGS (1)
  1. REMICADE [Suspect]
     Active Substance: INFLIXIMAB
     Indication: CROHN^S DISEASE
     Route: 042
     Dates: start: 201310

REACTIONS (6)
  - Rectal adenocarcinoma [Unknown]
  - Haemangioma of liver [Unknown]
  - Anal fistula [Unknown]
  - Cholelithiasis [Unknown]
  - Anal abscess [Unknown]
  - Anorectal stenosis [Unknown]

NARRATIVE: CASE EVENT DATE: 201407
